FAERS Safety Report 7965473-6 (Version None)
Quarter: 2011Q4

REPORT INFORMATION
  Report Type: 
  Country: None (occurrence: None)
  Receive Date: 20111206
  Receipt Date: 20111206
  Transmission Date: 20120403
  Serious: Yes (Other)
  Sender: FDA-Public Use
  Company Number: None

PATIENT
  Age: 54 Year
  Sex: Female

DRUGS (8)
  1. PROVIGIL [Concomitant]
  2. CYMBALTA [Concomitant]
  3. OXYBUTYNIN [Concomitant]
  4. BACLOFEN [Concomitant]
  5. COPAXONE [Concomitant]
  6. AMITRIPTYLINE HCL [Concomitant]
  7. NEURONTIN [Concomitant]
  8. AMPYRA [Suspect]
     Indication: MULTIPLE SCLEROSIS
     Dosage: 10MG Q12H ORALLY }16 MONTHS
     Route: 048

REACTIONS (1)
  - URINARY TRACT INFECTION [None]
